FAERS Safety Report 16258114 (Version 1)
Quarter: 2019Q2

REPORT INFORMATION
  Report Type: Spontaneous
  Country: DE (occurrence: DE)
  Receive Date: 20190430
  Receipt Date: 20190430
  Transmission Date: 20190711
  Serious: Yes (Other)
  Sender: FDA-Public Use
  Company Number: DE-MYLANLABS-2019M1040743

PATIENT
  Age: 34 Year
  Sex: Female

DRUGS (5)
  1. LEVETIRACETAM. [Suspect]
     Active Substance: LEVETIRACETAM
     Dosage: 3 UNK, QD(1500-1000-1500, 3X/DAY (TID))
     Route: 065
     Dates: start: 20171213, end: 2018
  2. LEVETIRACETAM. [Suspect]
     Active Substance: LEVETIRACETAM
     Indication: PRODUCT USED FOR UNKNOWN INDICATION
     Dosage: 2000 MILLIGRAM, QD(1000 MG, 2X/DAY (BID))
     Route: 065
     Dates: start: 20170607, end: 201712
  3. LEVETIRACETAM. [Suspect]
     Active Substance: LEVETIRACETAM
     Dosage: 3000 MILLIGRAM, QD(1500 MG, 2X/DAY (BID))
     Route: 065
     Dates: start: 20171205, end: 201712
  4. LEVETIRACETAM. [Suspect]
     Active Substance: LEVETIRACETAM
     Dosage: 2000 MILLIGRAM, QD(1000 MG, 2X/DAY (BID))
     Route: 065
     Dates: start: 2018
  5. SODIUM VALPROATE [Concomitant]
     Active Substance: VALPROATE SODIUM
     Indication: EPILEPSY
     Dosage: 300-0-500
     Dates: end: 20170607

REACTIONS (4)
  - Overdose [Unknown]
  - Seizure [Not Recovered/Not Resolved]
  - Exposure during pregnancy [Unknown]
  - Off label use [Unknown]

NARRATIVE: CASE EVENT DATE: 2017
